FAERS Safety Report 7638143-1 (Version None)
Quarter: 2011Q3

REPORT INFORMATION
  Report Type: 
  Country: None (occurrence: None)
  Receive Date: 20110727
  Receipt Date: 20110721
  Transmission Date: 20111222
  Serious: Yes (Death, Life-Threatening)
  Sender: FDA-Public Use
  Company Number: US-JNJFOC-20100106942

PATIENT
  Age: 69 Year
  Sex: Male

DRUGS (4)
  1. DIAZEPAM [Suspect]
     Indication: SUICIDE ATTEMPT
     Route: 048
  2. IBUPROFEN [Suspect]
     Indication: SUICIDE ATTEMPT
     Route: 048
     Dates: end: 20080101
  3. RISPERIDONE [Suspect]
     Indication: SUICIDE ATTEMPT
     Route: 048
     Dates: end: 20080101
  4. DULOXETINE HYDROCHLORIDE [Suspect]
     Indication: SUICIDE ATTEMPT
     Route: 048

REACTIONS (1)
  - TOXICITY TO VARIOUS AGENTS [None]
